FAERS Safety Report 9345827 (Version 1)
Quarter: 2013Q2

REPORT INFORMATION
  Report Type: Spontaneous
  Country: US (occurrence: US)
  Receive Date: 20130613
  Receipt Date: 20130613
  Transmission Date: 20140414
  Serious: No
  Sender: FDA-Public Use
  Company Number: US-US-EMD SERONO, INC.-7074002

PATIENT
  Sex: Female

DRUGS (2)
  1. REBIF [Suspect]
     Indication: MULTIPLE SCLEROSIS
     Route: 058
     Dates: start: 20101203
  2. SOLU-MEDROL [Suspect]
     Indication: MULTIPLE SCLEROSIS

REACTIONS (4)
  - Blood glucose increased [Unknown]
  - Burning sensation [Unknown]
  - Multiple sclerosis relapse [Unknown]
  - Injection site erythema [Unknown]
